FAERS Safety Report 7790740-9 (Version None)
Quarter: 2011Q3

REPORT INFORMATION
  Report Type: 
  Country: None (occurrence: None)
  Receive Date: 20110930
  Receipt Date: 20110615
  Transmission Date: 20111222
  Serious: No
  Sender: FDA-Public Use
  Company Number: US-BAYER-2011-051852

PATIENT
  Age: 53 Year
  Sex: Male

DRUGS (7)
  1. NEXIUM [Concomitant]
  2. ACTOS [Concomitant]
  3. PROZAC [Concomitant]
  4. TRICOR [Concomitant]
  5. LEVITRA [Suspect]
     Indication: ERECTILE DYSFUNCTION
     Dosage: 20 MG, PRN
     Route: 048
  6. CIALIS [Concomitant]
  7. AVALIDE [Concomitant]

REACTIONS (1)
  - DRUG DISPENSING ERROR [None]
